FAERS Safety Report 8543872-1 (Version None)
Quarter: 2012Q3

REPORT INFORMATION
  Report Type: 
  Country: None (occurrence: None)
  Receive Date: 20120727
  Receipt Date: 20120724
  Transmission Date: 20120928
  Serious: Yes (Hospitalization, Disabling, Other)
  Sender: FDA-Public Use
  Company Number: PHEH2012US014467

PATIENT
  Sex: Female

DRUGS (1)
  1. TEGRETOL-XR [Suspect]

REACTIONS (10)
  - FALL [None]
  - DYSSTASIA [None]
  - NAUSEA [None]
  - LETHARGY [None]
  - HEAD INJURY [None]
  - JOINT INJURY [None]
  - DIZZINESS [None]
  - BALANCE DISORDER [None]
  - VISION BLURRED [None]
  - THIRST [None]
